FAERS Safety Report 5157566-6 (Version None)
Quarter: 2006Q4

REPORT INFORMATION
  Report Type: 
  Country: None (occurrence: None)
  Receive Date: 20061127
  Receipt Date: 20061120
  Transmission Date: 20070319
  Serious: Yes (Hospitalization)
  Sender: FDA-Public Use
  Company Number: RU-GLAXOSMITHKLINE-B0447965A

PATIENT
  Age: 49 Year
  Sex: Male
  Weight: 106 kg

DRUGS (4)
  1. SERETIDE [Suspect]
     Indication: ASTHMA
     Route: 055
     Dates: start: 20010201
  2. LEVOTHYROXINE SODIUM [Concomitant]
     Dosage: 150MG PER DAY
     Dates: start: 19990101
  3. ARIFON [Concomitant]
     Dosage: 1.5MG PER DAY
     Dates: start: 20030101
  4. ATENOLOL [Concomitant]
     Dosage: 50MG PER DAY
     Dates: start: 20010101

REACTIONS (3)
  - DEEP VEIN THROMBOSIS [None]
  - PAIN [None]
  - SWELLING [None]
